FAERS Safety Report 24742584 (Version 1)
Quarter: 2024Q4

REPORT INFORMATION
  Report Type: Spontaneous
  Country: GB (occurrence: GB)
  Receive Date: 20241217
  Receipt Date: 20241217
  Transmission Date: 20250115
  Serious: Yes (Hospitalization)
  Sender: PERRIGO
  Company Number: GB-PERRIGO-24GB011255

PATIENT
  Age: 15 Year
  Sex: Female

DRUGS (1)
  1. ACETAMINOPHEN [Suspect]
     Active Substance: ACETAMINOPHEN
     Indication: Intentional overdose
     Dosage: ALL 32 TABLETS
     Route: 065

REACTIONS (1)
  - Intentional overdose [Recovered/Resolved]
